FAERS Safety Report 10151282 (Version 1)
Quarter: 2014Q2

REPORT INFORMATION
  Report Type: Spontaneous
  Country: US (occurrence: US)
  Receive Date: 20140502
  Receipt Date: 20140502
  Transmission Date: 20141212
  Serious: No
  Sender: FDA-Public Use
  Company Number: US-ASTRAZENECA-2013SE65106

PATIENT
  Sex: Female

DRUGS (3)
  1. PRILOSEC OTC [Suspect]
     Route: 048
     Dates: start: 20130820, end: 20130820
  2. LEVOXYL [Concomitant]
     Dosage: UNKNOWN
  3. ATENOLOL [Concomitant]
     Dosage: UNKNOWN

REACTIONS (5)
  - Neck pain [Recovered/Resolved]
  - Back pain [Recovered/Resolved]
  - Muscle strain [Recovered/Resolved]
  - Abdominal pain upper [Recovered/Resolved]
  - Headache [Recovered/Resolved]
